FAERS Safety Report 9037831 (Version 1)
Quarter: 2013Q1

REPORT INFORMATION
  Report Type: Report from Study
  Country: US (occurrence: US)
  Receive Date: 20130129
  Receipt Date: 20130129
  Transmission Date: 20140127
  Serious: Yes (Hospitalization, Other)
  Sender: FDA-Public Use
  Company Number: US-BAYER-2013-009164

PATIENT
  Age: 33 Year
  Sex: Female

DRUGS (6)
  1. BETASERON [Suspect]
     Indication: RELAPSING-REMITTING MULTIPLE SCLEROSIS
     Dosage: 8 MIU, QOD
     Route: 058
     Dates: start: 20110811, end: 20111112
  2. BETASERON [Suspect]
     Indication: RELAPSING-REMITTING MULTIPLE SCLEROSIS
     Dosage: 8 MIU, QOD
     Route: 058
     Dates: start: 20111220, end: 20120823
  3. BETASERON [Suspect]
     Indication: RELAPSING-REMITTING MULTIPLE SCLEROSIS
     Dosage: 8 MIU, QOD
     Route: 058
     Dates: start: 20120922, end: 20121123
  4. BETASERON [Suspect]
     Indication: RELAPSING-REMITTING MULTIPLE SCLEROSIS
     Dosage: 8 MIU, QOD
     Route: 058
     Dates: start: 20121130
  5. LONGACTING INSULIN [Concomitant]
     Indication: TYPE 2 DIABETES MELLITUS
  6. SHORT ACTING INSULIN [Concomitant]
     Indication: TYPE 2 DIABETES MELLITUS

REACTIONS (7)
  - Cardiac failure [Recovering/Resolving]
  - Swelling [Recovering/Resolving]
  - Dyspnoea [Recovering/Resolving]
  - Oxygen saturation decreased [Recovering/Resolving]
  - Loss of consciousness [Recovering/Resolving]
  - Pneumonia [Recovering/Resolving]
  - Sleep apnoea syndrome [Recovering/Resolving]
